FAERS Safety Report 7646305-2 (Version None)
Quarter: 2011Q3

REPORT INFORMATION
  Report Type: 
  Country: None (occurrence: None)
  Receive Date: 20110801
  Receipt Date: 20100212
  Transmission Date: 20111222
  Serious: No
  Sender: FDA-Public Use
  Company Number: 2010BI005156

PATIENT
  Sex: Female

DRUGS (1)
  1. TYSABRI [Suspect]
     Indication: MULTIPLE SCLEROSIS
     Route: 042
     Dates: start: 20070518, end: 20100901

REACTIONS (6)
  - MEMORY IMPAIRMENT [None]
  - MUSCULAR WEAKNESS [None]
  - DEPRESSION [None]
  - DYSSTASIA [None]
  - GAIT DISTURBANCE [None]
  - VISUAL IMPAIRMENT [None]
